FAERS Safety Report 12737500 (Version 2)
Quarter: 2017Q1

REPORT INFORMATION
  Report Type: Report from Study
  Country: BR (occurrence: BR)
  Receive Date: 20160913
  Receipt Date: 20170301
  Transmission Date: 20170428
  Serious: Yes (Hospitalization, Other)
  Sender: FDA-Public Use
  Company Number: BR-BAYER-2016-156854

PATIENT
  Age: 72 Year
  Sex: Female

DRUGS (6)
  1. MOTILIUM [Concomitant]
     Active Substance: DOMPERIDONE
     Indication: ERUCTATION
     Dosage: 1 DF, TID
     Route: 048
  2. CITALOPRAM [Concomitant]
     Active Substance: CITALOPRAM HYDROBROMIDE
     Indication: DEPRESSION
     Dosage: 1 DF, QD
     Route: 048
  3. NEXAVAR [Suspect]
     Active Substance: SORAFENIB
     Dosage: 800 MG, QD
     Route: 048
     Dates: start: 2016, end: 2016
  4. NEXAVAR [Suspect]
     Active Substance: SORAFENIB
     Dosage: UNK
     Route: 048
  5. COMPLEX B [Concomitant]
     Active Substance: CALCIUM PANTOTHENATE\CYANOCOBALAMIN\NIACINAMIDE\PYRIDOXINE HYDROCHLORIDE\RIBOFLAVIN\THIAMINE MONONITRATE
     Indication: DECREASED APPETITE
     Dosage: 1 DF, BID
     Route: 048
  6. NEXAVAR [Suspect]
     Active Substance: SORAFENIB
     Dosage: 400 MG, QD
     Route: 048
     Dates: start: 2016, end: 2016

REACTIONS (13)
  - Weight decreased [Not Recovered/Not Resolved]
  - Delirium [Recovered/Resolved]
  - Adverse event [Not Recovered/Not Resolved]
  - Skin exfoliation [Not Recovered/Not Resolved]
  - Lip exfoliation [Recovering/Resolving]
  - Gait disturbance [Not Recovered/Not Resolved]
  - Lip haemorrhage [None]
  - Decreased appetite [Recovering/Resolving]
  - Skin hypertrophy [Not Recovered/Not Resolved]
  - Dry skin [Recovering/Resolving]
  - Eructation [Recovering/Resolving]
  - Pyrexia [Recovered/Resolved]
  - Chapped lips [None]

NARRATIVE: CASE EVENT DATE: 2016
